FAERS Safety Report 4668440-3 (Version None)
Quarter: 2005Q2

REPORT INFORMATION
  Report Type: 
  Country: None (occurrence: None)
  Receive Date: 20050518
  Receipt Date: 20050429
  Transmission Date: 20051028
  Serious: Yes (Life-Threatening)
  Sender: FDA-Public Use
  Company Number: B0380126A

PATIENT
  Age: 12 Year
  Sex: Male

DRUGS (1)
  1. FLOVENT HFA [Suspect]
     Indication: RHINITIS SEASONAL
     Dosage: NASAL SPR

REACTIONS (5)
  - CUSHINGOID [None]
  - INAPPROPRIATE SCHEDULE OF DRUG ADMINISTRATION [None]
  - NECK MASS [None]
  - SELF-MEDICATION [None]
  - WEIGHT INCREASED [None]
